FAERS Safety Report 10254772 (Version 1)
Quarter: 2014Q2

REPORT INFORMATION
  Report Type: Spontaneous
  Country: US (occurrence: None)
  Receive Date: 20140620
  Receipt Date: 20140620
  Transmission Date: 20141212
  Serious: Yes (Other)
  Sender: FDA-Public Use
  Company Number: None

PATIENT
  Age: 80 Year
  Sex: Female
  Weight: 60.78 kg

DRUGS (1)
  1. CIPROFLOXACIN [Suspect]
     Indication: URINARY TRACT INFECTION
     Dosage: 2 PILLS, TWICE DAILY, TAKEN BY MOUTH
     Route: 048
     Dates: start: 20140524, end: 20140528

REACTIONS (5)
  - Vision blurred [None]
  - Musculoskeletal pain [None]
  - Vertigo [None]
  - Vomiting [None]
  - Fatigue [None]
